FAERS Safety Report 23772148 (Version 3)
Quarter: 2024Q2

REPORT INFORMATION
  Report Type: Other
  Country: CO (occurrence: CO)
  Receive Date: 20240423
  Receipt Date: 20240604
  Transmission Date: 20240716
  Serious: Yes (Hospitalization)
  Sender: FDA-Public Use
  Company Number: CO-002147023-NVSC2024CO079514

PATIENT
  Age: 54 Year
  Sex: Female
  Weight: 73 kg

DRUGS (2)
  1. XOLAIR [Suspect]
     Active Substance: OMALIZUMAB
     Indication: Chronic spontaneous urticaria
     Dosage: 300 MG, QMO (APPLIED TWO INJECTIONS, 1 IN EACH ARM)
     Route: 058
     Dates: start: 20240408
  2. XOLAIR [Suspect]
     Active Substance: OMALIZUMAB
     Dosage: 300 MG, QMO
     Route: 058
     Dates: start: 20240408

REACTIONS (5)
  - Pain [Unknown]
  - Loss of consciousness [Unknown]
  - Malaise [Unknown]
  - Hypertension [Unknown]
  - Tension [Unknown]

NARRATIVE: CASE EVENT DATE: 20240408
